FAERS Safety Report 19468566 (Version 1)
Quarter: 2021Q2

REPORT INFORMATION
  Report Type: Spontaneous
  Country: GB (occurrence: GB)
  Receive Date: 20210628
  Receipt Date: 20210628
  Transmission Date: 20210717
  Serious: Yes (Other)
  Sender: FDA-Public Use
  Company Number: IT-SUNOVION-2021SUN002462

PATIENT
  Age: 40 Year
  Sex: Female

DRUGS (3)
  1. LURASIDONE HYDROCHLORIDE. [Suspect]
     Active Substance: LURASIDONE HYDROCHLORIDE
     Indication: PRODUCT USED FOR UNKNOWN INDICATION
     Dosage: 37 MILLIGRAM
     Route: 065
     Dates: start: 20190312, end: 20191008
  2. SERTRALINE [Concomitant]
     Active Substance: SERTRALINE HYDROCHLORIDE
  3. OLANZAPINE. [Concomitant]
     Active Substance: OLANZAPINE

REACTIONS (5)
  - Acute psychosis [Unknown]
  - Treatment noncompliance [Unknown]
  - Drug ineffective [Unknown]
  - Mental impairment [Unknown]
  - Schizophrenia [Unknown]

NARRATIVE: CASE EVENT DATE: 20190920
